FAERS Safety Report 13143327 (Version 1)
Quarter: 2017Q1

REPORT INFORMATION
  Report Type: Spontaneous
  Country: US (occurrence: US)
  Receive Date: 20170123
  Receipt Date: 20170123
  Transmission Date: 20170428
  Serious: No
  Sender: FDA-Public Use
  Company Number: None

PATIENT
  Age: 77 Year
  Sex: Female

DRUGS (1)
  1. REVLIMID [Suspect]
     Active Substance: LENALIDOMIDE
     Indication: PLASMA CELL MYELOMA
     Dosage: MON, WED, FRI, SUN
     Route: 048
     Dates: start: 20161229

REACTIONS (2)
  - Tremor [None]
  - Fatigue [None]

NARRATIVE: CASE EVENT DATE: 20170119
